FAERS Safety Report 6573476-1 (Version None)
Quarter: 2010Q1

REPORT INFORMATION
  Report Type: 
  Country: None (occurrence: None)
  Receive Date: 20100208
  Receipt Date: 20100124
  Transmission Date: 20100710
  Serious: Yes (Death)
  Sender: FDA-Public Use
  Company Number: DE-TYCO HEALTHCARE/MALLINCKRODT-T201000557

PATIENT
  Age: 41 Year
  Sex: Male

DRUGS (2)
  1. FENTANYL CITRATE TRANSMUCOSAL [Suspect]
     Dosage: UNK
  2. ALCOHOL [Suspect]
     Dosage: UNK

REACTIONS (1)
  - DRUG TOXICITY [None]
